FAERS Safety Report 5338595-6 (Version None)
Quarter: 2007Q2

REPORT INFORMATION
  Report Type: 
  Country: None (occurrence: None)
  Receive Date: 20070322
  Receipt Date: 20060613
  Transmission Date: 20071010
  Serious: Yes (Other)
  Sender: FDA-Public Use
  Company Number: 200612305BCC

PATIENT
  Age: 32 Year
  Sex: Male
  Weight: 107.5025 kg

DRUGS (1)
  1. ALEVE (CAPLET) [Suspect]
     Indication: PYREXIA
     Dosage: 880 MG, ONCE, ORAL
     Route: 048
     Dates: start: 20060530

REACTIONS (2)
  - HAEMATEMESIS [None]
  - RASH [None]
